FAERS Safety Report 4632699-9 (Version None)
Quarter: 2005Q2

REPORT INFORMATION
  Report Type: 
  Country: None (occurrence: None)
  Receive Date: 20050412
  Receipt Date: 20050404
  Transmission Date: 20051028
  Serious: Yes (Other)
  Sender: FDA-Public Use
  Company Number: BE-JNJFOC-20040705798

PATIENT

DRUGS (2)
  1. INFLIXIMAB [Suspect]
     Indication: RHEUMATOID ARTHRITIS
     Route: 042
  2. METHOTREXATE [Concomitant]
     Dosage: AT LEAST 15 MG WEEKLY

REACTIONS (3)
  - COLON CANCER [None]
  - NON-HODGKIN'S LYMPHOMA [None]
  - RECTAL CANCER [None]
